FAERS Safety Report 18195654 (Version 1)
Quarter: 2020Q3

REPORT INFORMATION
  Report Type: Spontaneous
  Country: ES (occurrence: ES)
  Receive Date: 20200826
  Receipt Date: 20200826
  Transmission Date: 20201103
  Serious: Yes (Hospitalization)
  Sender: FDA-Public Use
  Company Number: ES-SUN PHARMACEUTICAL INDUSTRIES LTD-2020RR-258765

PATIENT
  Age: 80 Year
  Sex: Female

DRUGS (4)
  1. CITALOPRAM [Interacting]
     Active Substance: CITALOPRAM HYDROBROMIDE
     Indication: DEPRESSION
     Dosage: 10MG/24H
     Route: 048
     Dates: start: 20180313
  2. MIRTAZAPINA (2704A) [Interacting]
     Active Substance: MIRTAZAPINE
     Indication: DEPRESSION
     Dosage: 30MG/24H
     Route: 048
     Dates: start: 20180124
  3. IRBESARTAN/HYDROCHLOROTHIAZIDE [Suspect]
     Active Substance: HYDROCHLOROTHIAZIDE\IRBESARTAN
     Indication: HYPERTENSION
     Dosage: 300/25MG /24H
     Route: 048
     Dates: start: 20180205
  4. TORASEMIDA [Interacting]
     Active Substance: TORSEMIDE
     Indication: HYPERTENSION
     Dosage: 10MG/12H
     Route: 048
     Dates: start: 20191227

REACTIONS (1)
  - Hyponatraemia [Recovered/Resolved]

NARRATIVE: CASE EVENT DATE: 20191229
